FAERS Safety Report 4365397-X (Version None)
Quarter: 2004Q2

REPORT INFORMATION
  Report Type: 
  Country: None (occurrence: None)
  Receive Date: 20040525
  Receipt Date: 20040512
  Transmission Date: 20050107
  Serious: Yes (Hospitalization)
  Sender: FDA-Public Use
  Company Number: FRP04000412

PATIENT
  Age: 70 Year
  Sex: Female

DRUGS (2)
  1. ACTONEL [Suspect]
     Dosage: ORAL
     Route: 048
  2. COUMADIN [Suspect]
     Dosage: ORAL
     Route: 048

REACTIONS (7)
  - ANAEMIA [None]
  - CONDITION AGGRAVATED [None]
  - HIATUS HERNIA [None]
  - HYPOTENSION [None]
  - OESOPHAGITIS [None]
  - RECTAL HAEMORRHAGE [None]
  - RENAL FAILURE [None]
